FAERS Safety Report 23428817 (Version 2)
Quarter: 2024Q1

REPORT INFORMATION
  Report Type: Spontaneous
  Country: US (occurrence: US)
  Receive Date: 20240122
  Receipt Date: 20240216
  Transmission Date: 20240409
  Serious: Yes (Hospitalization)
  Sender: FDA-Public Use
  Company Number: US-PFIZER INC-PV202400007873

PATIENT
  Age: 81 Year
  Sex: Male
  Weight: 96.599 kg

DRUGS (1)
  1. VYNDAMAX [Suspect]
     Active Substance: TAFAMIDIS
     Indication: Acquired ATTR amyloidosis
     Dosage: 61 MG, DAILY
     Route: 048
     Dates: start: 202309

REACTIONS (1)
  - Aortic valve replacement [Unknown]
